FAERS Safety Report 9189622 (Version 1)
Quarter: 2013Q1

REPORT INFORMATION
  Report Type: Report from Study
  Country: US (occurrence: US)
  Receive Date: 20130326
  Receipt Date: 20130326
  Transmission Date: 20140127
  Serious: Yes (Hospitalization)
  Sender: FDA-Public Use
  Company Number: US-JNJFOC-20130314979

PATIENT
  Age: 55 Year
  Sex: Female

DRUGS (1)
  1. NUCYNTA ER [Suspect]
     Indication: SUICIDAL BEHAVIOUR
     Route: 048

REACTIONS (3)
  - Suicidal behaviour [Unknown]
  - Anxiety [Unknown]
  - Agitation [Unknown]
